FAERS Safety Report 14648298 (Version 4)
Quarter: 2018Q2

REPORT INFORMATION
  Report Type: Spontaneous
  Country: US (occurrence: US)
  Receive Date: 20180316
  Receipt Date: 20180418
  Transmission Date: 20180711
  Serious: Yes (Other)
  Sender: FDA-Public Use
  Company Number: US-PFIZER INC-2018107359

PATIENT
  Age: 90 Year
  Sex: Female
  Weight: 49.9 kg

DRUGS (3)
  1. SUTENT [Suspect]
     Active Substance: SUNITINIB MALATE
     Indication: RENAL CELL CARCINOMA
     Dosage: 25 MG, 1X/DAY
     Route: 048
  2. SUTENT [Suspect]
     Active Substance: SUNITINIB MALATE
     Dosage: 37.5 MG, CYCLIC (EVERY DAY FOR 2 WEEKS. 1 WEEK OFF REPEAT)
     Route: 048
  3. LEVOTHYROXINE. [Concomitant]
     Active Substance: LEVOTHYROXINE
     Indication: HYPERTHYROIDISM
     Dosage: 0.88 MG, 1X/DAY
     Route: 048

REACTIONS (5)
  - Vomiting [Unknown]
  - Constipation [Not Recovered/Not Resolved]
  - Skin lesion [Unknown]
  - Lung neoplasm malignant [Unknown]
  - Second primary malignancy [Unknown]
